FAERS Safety Report 10203501 (Version 1)
Quarter: 2014Q2

REPORT INFORMATION
  Report Type: Spontaneous
  Country: US (occurrence: None)
  Receive Date: 20140523
  Receipt Date: 20140523
  Transmission Date: 20141212
  Serious: Yes (Other)
  Sender: FDA-Public Use
  Company Number: 2014P1004132

PATIENT
  Age: 10 Year
  Sex: Male
  Weight: 24.95 kg

DRUGS (3)
  1. ACTIMMUNE [Suspect]
     Indication: CHRONIC GRANULOMATOUS DISEASE
     Route: 058
     Dates: start: 2004
  2. BACTRIM [Concomitant]
  3. SPORANOX [Concomitant]

REACTIONS (3)
  - Hepatic infection [None]
  - Injection site rash [None]
  - Injection site erythema [None]
